FAERS Safety Report 6104812-8 (Version None)
Quarter: 2009Q1

REPORT INFORMATION
  Report Type: 
  Country: None (occurrence: None)
  Receive Date: 20090306
  Receipt Date: 20090222
  Transmission Date: 20090719
  Serious: Yes (Other)
  Sender: FDA-Public Use
  Company Number: PHHY2009GB07008

PATIENT
  Sex: Female

DRUGS (5)
  1. CLOZARIL [Suspect]
     Indication: SCHIZOPHRENIA
     Dosage: 500 MG DAILY
     Route: 048
     Dates: start: 20081009, end: 20090221
  2. VALPROATE SODIUM [Concomitant]
     Dosage: 400 MG DAILY
  3. TRAMADOL HCL [Concomitant]
  4. LANSOPRAZOLE [Concomitant]
  5. BISOPROLOL [Concomitant]

REACTIONS (7)
  - BACK PAIN [None]
  - CONVULSION [None]
  - DYSKINESIA [None]
  - FALL [None]
  - HYPOTONIA [None]
  - SKIN LACERATION [None]
  - THORACIC VERTEBRAL FRACTURE [None]
